FAERS Safety Report 4381064-0 (Version None)
Quarter: 2004Q2

REPORT INFORMATION
  Report Type: 
  Country: None (occurrence: None)
  Receive Date: 20040601
  Receipt Date: 20040315
  Transmission Date: 20050107
  Serious: No
  Sender: FDA-Public Use
  Company Number: FABR-10504

PATIENT
  Sex: Male
  Weight: 77.1115 kg

DRUGS (1)
  1. FABRAZYME [Suspect]
     Indication: FABRY'S DISEASE
     Dates: start: 20030101

REACTIONS (1)
  - GENERAL PHYSICAL HEALTH DETERIORATION [None]
